FAERS Safety Report 17678838 (Version 1)
Quarter: 2020Q2

REPORT INFORMATION
  Report Type: Spontaneous
  Country: IT (occurrence: IT)
  Receive Date: 20200417
  Receipt Date: 20200417
  Transmission Date: 20200714
  Serious: Yes (Other)
  Sender: FDA-Public Use
  Company Number: IT-AUROBINDO-AUR-APL-2020-018700

PATIENT
  Age: 65 Year
  Sex: Male

DRUGS (1)
  1. LEVOFLOXACIN. [Suspect]
     Active Substance: LEVOFLOXACIN
     Indication: BRONCHITIS
     Dosage: 500 MILLIGRAM, ONCE A DAY
     Route: 048
     Dates: start: 20200226, end: 20200301

REACTIONS (5)
  - Lip oedema [Recovering/Resolving]
  - Dyspnoea [Recovering/Resolving]
  - Tracheal oedema [Recovering/Resolving]
  - Drug hypersensitivity [Recovering/Resolving]
  - Oesophageal oedema [Recovering/Resolving]

NARRATIVE: CASE EVENT DATE: 20200301
